FAERS Safety Report 7968272-4 (Version None)
Quarter: 2011Q4

REPORT INFORMATION
  Report Type: 
  Country: None (occurrence: None)
  Receive Date: 20111209
  Receipt Date: 20111206
  Transmission Date: 20120403
  Serious: Yes (Hospitalization, Other)
  Sender: FDA-Public Use
  Company Number: PHHY2011IN106572

PATIENT
  Age: 72 Year
  Sex: Male

DRUGS (1)
  1. TASIGNA [Suspect]
     Dosage: 400 MG, BID
     Dates: start: 20111108, end: 20111203

REACTIONS (2)
  - PLATELET COUNT DECREASED [None]
  - TOTAL LUNG CAPACITY DECREASED [None]
